FAERS Safety Report 24894034 (Version 1)
Quarter: 2025Q1

REPORT INFORMATION
  Report Type: Spontaneous
  Country: JP (occurrence: JP)
  Receive Date: 20250128
  Receipt Date: 20250128
  Transmission Date: 20250409
  Serious: Yes (Other)
  Sender: RANBAXY
  Company Number: JP-SUN PHARMACEUTICAL INDUSTRIES LTD-2025RR-490659

PATIENT
  Age: 63 Year
  Sex: Male

DRUGS (4)
  1. IMATINIB [Interacting]
     Active Substance: IMATINIB
     Indication: Chronic myeloid leukaemia
     Route: 065
  2. DASATINIB [Suspect]
     Active Substance: DASATINIB
     Indication: Chronic myeloid leukaemia
     Dosage: 20 MILLIGRAM, DAILY
     Route: 065
  3. NILOTINIB [Suspect]
     Active Substance: NILOTINIB
     Indication: Chronic myeloid leukaemia
     Dosage: 150 MILLIGRAM, DAILY
     Route: 065
  4. NILOTINIB [Suspect]
     Active Substance: NILOTINIB
     Dosage: 300 MILLIGRAM, DAILY
     Route: 065

REACTIONS (7)
  - Oliguria [Unknown]
  - Weight increased [Unknown]
  - Renal failure [Unknown]
  - Drug intolerance [Unknown]
  - Drug interaction [Unknown]
  - Renal failure [Unknown]
  - Diarrhoea [Unknown]
